FAERS Safety Report 8264379-5 (Version None)
Quarter: 2012Q2

REPORT INFORMATION
  Report Type: 
  Country: None (occurrence: None)
  Receive Date: 20120406
  Receipt Date: 20120328
  Transmission Date: 20120825
  Serious: Yes (Hospitalization, Other)
  Sender: FDA-Public Use
  Company Number: PHHY2012DE005223

PATIENT
  Sex: Female

DRUGS (7)
  1. URSO FALK [Concomitant]
     Indication: CYSTIC FIBROSIS
     Dosage: 400 MG, QD
     Route: 048
  2. MULTI-VITAMINS [Concomitant]
  3. TOBI [Suspect]
     Indication: PSEUDOMONAS INFECTION
     Dosage: 4 DF, BID
     Dates: start: 20111130, end: 20120115
  4. URSO FALK [Concomitant]
     Indication: LIVER DISORDER
  5. BRAMITOB [Concomitant]
     Indication: CYSTIC FIBROSIS
     Dosage: 1 DF, UNK
     Dates: start: 20120328
  6. AZITHROMYCIN [Concomitant]
     Indication: CYSTIC FIBROSIS
     Dosage: 500 MG, QW3
  7. FEMIGYN [Concomitant]

REACTIONS (1)
  - HAEMOPTYSIS [None]
